FAERS Safety Report 7046502-3 (Version None)
Quarter: 2010Q4

REPORT INFORMATION
  Report Type: 
  Country: None (occurrence: None)
  Receive Date: 20101014
  Receipt Date: 20101012
  Transmission Date: 20110411
  Serious: Yes (Hospitalization)
  Sender: FDA-Public Use
  Company Number: PHHO2010PL14229

PATIENT
  Sex: Female
  Weight: 87 kg

DRUGS (10)
  1. ENALAPRIL MALEATE [Suspect]
     Indication: CARDIAC FAILURE CHRONIC
     Dosage: NO TREATMENT
  2. BLINDED LCZ696 LCZ+TAB [Suspect]
     Indication: CARDIAC FAILURE CHRONIC
     Dosage: NO TREATMENT
  3. BLINDED NO TREATMENT RECEIVED NOMED [Suspect]
     Indication: CARDIAC FAILURE CHRONIC
     Dosage: NO TREATMENT
  4. CLOPIDOGREL [Concomitant]
     Indication: CORONARY ARTERY DISEASE
  5. BISOPROLOL [Concomitant]
     Indication: CIRCULATORY COLLAPSE
  6. ATORVASTATIN [Concomitant]
     Indication: HYPERLIPIDAEMIA
  7. SPIRONOLACTONE [Concomitant]
     Indication: CIRCULATORY COLLAPSE
  8. PANTOPRAZOLE [Concomitant]
     Indication: PROPHYLAXIS AGAINST GASTROINTESTINAL ULCER
  9. ACENOCOUMAROL [Concomitant]
     Indication: ATRIAL FIBRILLATION
  10. RAMIPRIL [Concomitant]
     Indication: HYPERTENSION

REACTIONS (2)
  - ATRIAL TACHYCARDIA [None]
  - CONCOMITANT DISEASE PROGRESSION [None]
